FAERS Safety Report 5155211-7 (Version None)
Quarter: 2006Q4

REPORT INFORMATION
  Report Type: 
  Country: None (occurrence: None)
  Receive Date: 20061121
  Receipt Date: 20061110
  Transmission Date: 20070319
  Serious: Yes (Death)
  Sender: FDA-Public Use
  Company Number: US-KINGPHARMUSA00001-K200601460

PATIENT
  Age: 47 Year

DRUGS (2)
  1. KETALAR [Suspect]
  2. COCAINE [Suspect]

REACTIONS (2)
  - DRUG ABUSER [None]
  - INTENTIONAL DRUG MISUSE [None]
